FAERS Safety Report 9897343 (Version 2)
Quarter: 2014Q1

REPORT INFORMATION
  Report Type: Spontaneous
  Country: IL (occurrence: IL)
  Receive Date: 20140214
  Receipt Date: 20140220
  Transmission Date: 20141002
  Serious: Yes (Hospitalization, Other)
  Sender: FDA-Public Use
  Company Number: IL-ABBVIE-14P-082-1198516-00

PATIENT
  Sex: Male
  Weight: 65 kg

DRUGS (3)
  1. HUMIRA [Suspect]
     Indication: CROHN^S DISEASE
     Route: 058
     Dates: start: 201310, end: 201312
  2. HUMIRA [Suspect]
     Route: 058
     Dates: start: 20121031, end: 201311
  3. MODULEN [Concomitant]
     Indication: NUTRITIONAL SUPPLEMENTATION

REACTIONS (4)
  - Intestinal obstruction [Unknown]
  - Intestinal resection [Recovered/Resolved]
  - Gastrointestinal dilation procedure [Recovered/Resolved]
  - Crohn^s disease [Recovering/Resolving]
